FAERS Safety Report 18966262 (Version 5)
Quarter: 2021Q3

REPORT INFORMATION
  Report Type: Report from Study
  Country: US (occurrence: US)
  Receive Date: 20210304
  Receipt Date: 20210826
  Transmission Date: 20211014
  Serious: Yes (Hospitalization, Other)
  Sender: FDA-Public Use
  Company Number: NVSC2021US043391

PATIENT
  Age: 48 Year
  Sex: Female

DRUGS (2)
  1. COSENTYX [Suspect]
     Active Substance: SECUKINUMAB
     Indication: PSORIASIS
     Dosage: 150 MG, QMO
     Route: 058
  2. COSENTYX [Suspect]
     Active Substance: SECUKINUMAB
     Indication: PSORIATIC ARTHROPATHY
     Dosage: 150 MG, ONCE WEEKLY FOR 5 WEEKS, THEN ONCE EVERY 4 WEEKS, BENEATH THE SKIN, USUALLY VIA INJECTION
     Route: 058
     Dates: start: 202012

REACTIONS (4)
  - Irritable bowel syndrome [Unknown]
  - Gastrointestinal disorder [Unknown]
  - Clostridium difficile colitis [Unknown]
  - Pain [Unknown]

NARRATIVE: CASE EVENT DATE: 202104
